FAERS Safety Report 9412962 (Version 1)
Quarter: 2013Q3

REPORT INFORMATION
  Report Type: Spontaneous
  Country: US (occurrence: US)
  Receive Date: 20130722
  Receipt Date: 20130722
  Transmission Date: 20140515
  Serious: No
  Sender: FDA-Public Use
  Company Number: US-BAYER-2013-088453

PATIENT
  Age: 13 Year
  Sex: Male
  Weight: 41 kg

DRUGS (2)
  1. ALEVE TABLET [Suspect]
     Indication: TOOTHACHE
     Route: 048
  2. ALEVE TABLET [Suspect]
     Indication: TOOTHACHE
     Dosage: DAILY DOSE 4 DF
     Dates: start: 20130715, end: 20130715

REACTIONS (2)
  - Bone pain [Recovered/Resolved]
  - Extra dose administered [None]
